FAERS Safety Report 8270920-9 (Version None)
Quarter: 2012Q2

REPORT INFORMATION
  Report Type: 
  Country: None (occurrence: None)
  Receive Date: 20120410
  Receipt Date: 20120403
  Transmission Date: 20120825
  Serious: Yes (Disabling, Other)
  Sender: FDA-Public Use
  Company Number: US-PFIZER INC-2010079878

PATIENT
  Sex: Female
  Weight: 104 kg

DRUGS (12)
  1. LYRICA [Suspect]
     Dosage: UNK
     Route: 048
     Dates: end: 20110101
  2. HYDROCODONE [Concomitant]
     Dosage: UNK
  3. NEXIUM [Concomitant]
     Dosage: UNK
  4. LYRICA [Suspect]
     Indication: NERVE INJURY
     Dosage: 50 MG, 1X/DAY
     Route: 048
  5. NEURONTIN [Suspect]
     Indication: FIBROMYALGIA
  6. NEURONTIN [Suspect]
     Indication: ARTHRALGIA
     Dosage: UNK
     Dates: start: 20100101
  7. LYRICA [Suspect]
     Dosage: 150 MG, 2X/DAY
     Route: 048
  8. ALPRAZOLAM [Suspect]
     Indication: ANXIETY
     Dosage: 0.25 MG, 1X/DAY
     Route: 048
  9. NEURONTIN [Suspect]
     Indication: NERVE INJURY
     Dosage: UNK
     Route: 048
     Dates: end: 20090101
  10. LYRICA [Suspect]
     Indication: RESTLESS LEGS SYNDROME
     Dosage: 75 MG, 2X/DAY
     Route: 048
  11. METHADONE [Concomitant]
     Indication: PAIN
     Dosage: UNK
  12. NEURONTIN [Suspect]
     Indication: NEUROPATHY PERIPHERAL

REACTIONS (6)
  - CONVULSION [None]
  - DIZZINESS [None]
  - ILL-DEFINED DISORDER [None]
  - FEELING ABNORMAL [None]
  - HALLUCINATION [None]
  - WEIGHT INCREASED [None]
